FAERS Safety Report 5199237-6 (Version None)
Quarter: 2007Q1

REPORT INFORMATION
  Report Type: 
  Country: None (occurrence: None)
  Receive Date: 20070104
  Receipt Date: 20061226
  Transmission Date: 20070707
  Serious: Yes (Other)
  Sender: FDA-Public Use
  Company Number: US-PFIZER INC-2006155648

PATIENT
  Sex: Male
  Weight: 83.9 kg

DRUGS (5)
  1. ZITHROMAX [Suspect]
     Dates: start: 20050101, end: 20061225
  2. LIPITOR [Interacting]
     Indication: BLOOD CHOLESTEROL INCREASED
  3. COUMADIN [Interacting]
     Indication: COAGULOPATHY
  4. ADVIL [Concomitant]
  5. LISINOPRIL [Concomitant]

REACTIONS (5)
  - ARTHRITIS INFECTIVE [None]
  - BRONCHITIS [None]
  - DRUG INTERACTION [None]
  - JOINT SWELLING [None]
  - OEDEMA PERIPHERAL [None]
